FAERS Safety Report 4428325-4 (Version None)
Quarter: 2004Q3

REPORT INFORMATION
  Report Type: 
  Country: None (occurrence: None)
  Receive Date: 20040818
  Receipt Date: 20040806
  Transmission Date: 20050211
  Serious: Yes (Death)
  Sender: FDA-Public Use
  Company Number: US-JNJFOC-20040802685

PATIENT
  Sex: Female

DRUGS (15)
  1. INFLIXIMAB [Suspect]
     Indication: RHEUMATOID ARTHRITIS
     Route: 042
  2. PREDNISONE [Concomitant]
  3. SYNTHROID [Concomitant]
  4. FOSAMAX [Concomitant]
  5. FOLIC ACID [Concomitant]
  6. AMARYL [Concomitant]
  7. BENICAR [Concomitant]
  8. NORVASC [Concomitant]
  9. TRIAMTERENE AND HYDROCHLOROTHIAZIDE [Concomitant]
  10. TRIAMTERENE AND HYDROCHLOROTHIAZIDE [Concomitant]
  11. ALPRAZOLAM [Concomitant]
  12. CALCIUM [Concomitant]
  13. ASPIRIN [Concomitant]
  14. METHOTREXATE [Concomitant]
  15. TYLENOL [Concomitant]

REACTIONS (1)
  - RENAL FAILURE [None]
